FAERS Safety Report 8974383 (Version 2)
Quarter: 2013Q1

REPORT INFORMATION
  Report Type: Spontaneous
  Country: US (occurrence: US)
  Receive Date: 20121219
  Receipt Date: 20130109
  Transmission Date: 20140127
  Serious: Yes (Life-Threatening)
  Sender: FDA-Public Use
  Company Number: US-009507513-1212USA006676

PATIENT
  Age: 46 Year
  Sex: Female

DRUGS (6)
  1. VICTRELIS [Suspect]
     Indication: HEPATITIS C
     Dosage: 800 MG, TID
     Route: 048
     Dates: start: 20120828
  2. RIBAVIRIN [Suspect]
  3. PEGASYS [Suspect]
  4. RISPERIDONE [Concomitant]
  5. SEROQUEL [Concomitant]
  6. BUPROPION HYDROCHLORIDE [Concomitant]

REACTIONS (1)
  - Suicidal ideation [Unknown]
